FAERS Safety Report 15640945 (Version 1)
Quarter: 2018Q4

REPORT INFORMATION
  Report Type: Report from Study
  Country: US (occurrence: US)
  Receive Date: 20181120
  Receipt Date: 20181120
  Transmission Date: 20190205
  Serious: No
  Sender: FDA-Public Use
  Company Number: US-ALEXION PHARMACEUTICALS INC.-A201815056

PATIENT
  Sex: Female

DRUGS (1)
  1. SOLIRIS [Suspect]
     Active Substance: ECULIZUMAB
     Indication: ATYPICAL HAEMOLYTIC URAEMIC SYNDROME
     Dosage: UNK
     Route: 065

REACTIONS (11)
  - Red blood cell count decreased [Unknown]
  - Haemoglobin decreased [Unknown]
  - Blood phosphorus decreased [Unknown]
  - Protein total decreased [Unknown]
  - Blood creatinine increased [Unknown]
  - Haematocrit decreased [Unknown]
  - Blood urea increased [Unknown]
  - Calcium ionised decreased [Unknown]
  - Eosinophil count increased [Unknown]
  - Lymphocyte count decreased [Unknown]
  - Reticulocyte count decreased [Unknown]

NARRATIVE: CASE EVENT DATE: 20181109
